FAERS Safety Report 4611934-7 (Version None)
Quarter: 2005Q2

REPORT INFORMATION
  Report Type: 
  Country: None (occurrence: None)
  Receive Date: 20050308
  Receipt Date: 20041215
  Transmission Date: 20051028
  Serious: Yes (Other)
  Sender: FDA-Public Use
  Company Number: 2004UW25667

PATIENT
  Age: 65 Year
  Sex: Female
  Weight: 90.718 kg

DRUGS (5)
  1. CRESTOR [Suspect]
     Indication: HYPERCHOLESTEROLAEMIA
     Dosage: 10 MG PO
     Route: 048
  2. AMARYL [Concomitant]
  3. ACTONEL [Concomitant]
  4. METFORMIN [Concomitant]
  5. ASPIRIN [Concomitant]

REACTIONS (6)
  - BACK PAIN [None]
  - CHROMATURIA [None]
  - INSOMNIA [None]
  - MUSCLE SPASMS [None]
  - NAUSEA [None]
  - URINE OUTPUT DECREASED [None]
